FAERS Safety Report 5030793-4 (Version None)
Quarter: 2006Q2

REPORT INFORMATION
  Report Type: 
  Country: None (occurrence: None)
  Receive Date: 20060614
  Receipt Date: 20060605
  Transmission Date: 20061013
  Serious: Yes (Life-Threatening, Hospitalization)
  Sender: FDA-Public Use
  Company Number: 200611960GDS

PATIENT
  Age: 47 Year
  Sex: Female
  Weight: 61.5 kg

DRUGS (10)
  1. SORAFENIB [Suspect]
     Indication: MALIGNANT MELANOMA
     Dosage: 400 MG, BID, ORAL
     Route: 048
     Dates: start: 20060401, end: 20060602
  2. FENTANYL TRANSDERMAL SYSTEM [Concomitant]
  3. MS CONTIN [Concomitant]
  4. GABAPENTIN [Concomitant]
  5. ORDINE [Concomitant]
  6. DEXAMETHASONE TAB [Concomitant]
  7. DOTHIEPIN HYDROCHLORIDE [Concomitant]
  8. ACETAMINOPHEN [Concomitant]
  9. BRUFEN [Concomitant]
  10. PRAMIN [Concomitant]

REACTIONS (4)
  - CEREBRAL HAEMORRHAGE [None]
  - GRAND MAL CONVULSION [None]
  - PAIN MANAGEMENT [None]
  - VITH NERVE PARALYSIS [None]
